FAERS Safety Report 24020018 (Version 1)
Quarter: 2024Q2

REPORT INFORMATION
  Report Type: Report from Study
  Country: SE (occurrence: SE)
  Receive Date: 20240627
  Receipt Date: 20240627
  Transmission Date: 20240715
  Serious: Yes (Death)
  Sender: FDA-Public Use
  Company Number: SE-ROCHE-3182320

PATIENT
  Age: 81 Year
  Sex: Female

DRUGS (6)
  1. RITUXIMAB [Interacting]
     Active Substance: RITUXIMAB
     Indication: Rheumatoid arthritis
     Route: 042
     Dates: start: 20200526
  2. RITUXIMAB [Interacting]
     Active Substance: RITUXIMAB
     Dosage: MOST RECENT BOOSTER DOSE
     Route: 042
     Dates: start: 20210929
  3. PREDNISOLONE [Interacting]
     Active Substance: PREDNISOLONE
     Indication: Rheumatoid arthritis
     Route: 065
  4. PFIZER-BIONTECH COVID-19 VACCINE [Interacting]
     Active Substance: TOZINAMERAN
     Indication: COVID-19 prophylaxis
     Route: 065
     Dates: start: 20210319
  5. PFIZER-BIONTECH COVID-19 VACCINE [Interacting]
     Active Substance: TOZINAMERAN
     Route: 065
     Dates: start: 20210416
  6. PFIZER-BIONTECH COVID-19 VACCINE [Interacting]
     Active Substance: TOZINAMERAN
     Route: 065
     Dates: start: 20211005

REACTIONS (4)
  - Vaccine interaction [Fatal]
  - Vaccination failure [Recovered/Resolved]
  - COVID-19 [Fatal]
  - Intestinal haemorrhage [Fatal]
